FAERS Safety Report 25133890 (Version 1)
Quarter: 2025Q1

REPORT INFORMATION
  Report Type: Spontaneous
  Country: JP (occurrence: JP)
  Receive Date: 20250328
  Receipt Date: 20250328
  Transmission Date: 20250408
  Serious: Yes (Death, Other)
  Sender: MERCK SHARP & DOHME LLC
  Company Number: JP-MSD-M2025-03013

PATIENT
  Age: 40 Year
  Sex: Female

DRUGS (4)
  1. KEYTRUDA [Suspect]
     Active Substance: PEMBROLIZUMAB
     Indication: Cervix carcinoma stage IV
     Dosage: DOSE DESCRIPTION : 200 MILLIGRAM, Q3W?DAILY DOSE : 9.4 MILLIGRAM?REGIMEN DOSE : 200  MILLIGRAM
     Route: 041
     Dates: start: 202308, end: 202406
  2. CARBOPLATIN [Concomitant]
     Active Substance: CARBOPLATIN
     Indication: Cervix carcinoma stage IV
     Route: 065
     Dates: start: 202302, end: 202407
  3. PACLITAXEL [Concomitant]
     Active Substance: PACLITAXEL
     Indication: Cervix carcinoma stage IV
     Route: 065
     Dates: start: 202302, end: 202407
  4. BEVACIZUMAB [Concomitant]
     Active Substance: BEVACIZUMAB
     Indication: Cervix carcinoma stage IV
     Route: 065
     Dates: start: 202302, end: 202407

REACTIONS (4)
  - Cardiac arrest [Fatal]
  - Intellectual disability [Unknown]
  - Cortisol decreased [Unknown]
  - Hypoglycaemia [Unknown]

NARRATIVE: CASE EVENT DATE: 20240901
